FAERS Safety Report 14331041 (Version 2)
Quarter: 2017Q4

REPORT INFORMATION
  Report Type: Spontaneous
  Country: US (occurrence: US)
  Receive Date: 20171228
  Receipt Date: 20171228
  Transmission Date: 20180321
  Serious: No
  Sender: FDA-Public Use
  Company Number: US-ABBVIE-17P-163-2187915-00

PATIENT
  Age: 73 Year
  Sex: Male

DRUGS (16)
  1. LUPRON [Suspect]
     Active Substance: LEUPROLIDE ACETATE
     Route: 050
     Dates: start: 201510
  2. MAGNESIUM [Concomitant]
     Active Substance: MAGNESIUM
     Indication: PRODUCT USED FOR UNKNOWN INDICATION
  3. LUPRON [Suspect]
     Active Substance: LEUPROLIDE ACETATE
     Indication: PROSTATE CANCER
     Route: 050
     Dates: start: 201301, end: 201501
  4. ZYRTEC [Concomitant]
     Active Substance: CETIRIZINE HYDROCHLORIDE
     Indication: PRODUCT USED FOR UNKNOWN INDICATION
  5. LUPRON [Suspect]
     Active Substance: LEUPROLIDE ACETATE
     Route: 050
     Dates: start: 201606
  6. TERAZOSIN [Concomitant]
     Active Substance: TERAZOSIN\TERAZOSIN HYDROCHLORIDE
     Indication: PRODUCT USED FOR UNKNOWN INDICATION
  7. LUPRON [Suspect]
     Active Substance: LEUPROLIDE ACETATE
     Indication: PROSTATE CANCER
     Route: 050
     Dates: start: 201501
  8. LIDOCAINE. [Concomitant]
     Active Substance: LIDOCAINE
     Indication: PRODUCT USED FOR UNKNOWN INDICATION
  9. METOPROLOL. [Concomitant]
     Active Substance: METOPROLOL
     Indication: PRODUCT USED FOR UNKNOWN INDICATION
  10. TRIAMCINOLONE [Concomitant]
     Active Substance: TRIAMCINOLONE
     Indication: PRODUCT USED FOR UNKNOWN INDICATION
  11. VITAMIN D3 [Concomitant]
     Active Substance: CHOLECALCIFEROL
     Indication: PRODUCT USED FOR UNKNOWN INDICATION
  12. VITAMIN B [Concomitant]
     Active Substance: VITAMIN B
     Indication: PRODUCT USED FOR UNKNOWN INDICATION
  13. ELIGARD [Suspect]
     Active Substance: LEUPROLIDE ACETATE
     Route: 058
     Dates: start: 20171026
  14. ATORVASTATIN [Concomitant]
     Active Substance: ATORVASTATIN
     Indication: PRODUCT USED FOR UNKNOWN INDICATION
  15. ELIGARD [Suspect]
     Active Substance: LEUPROLIDE ACETATE
     Indication: PROSTATE CANCER
     Route: 058
     Dates: start: 20170103
  16. ELIQUIS [Concomitant]
     Active Substance: APIXABAN
     Indication: PRODUCT USED FOR UNKNOWN INDICATION

REACTIONS (26)
  - Injection site erythema [Unknown]
  - Injection site erythema [Unknown]
  - Injection site erythema [Unknown]
  - Injection site swelling [Unknown]
  - Injection site mass [Unknown]
  - Injection site swelling [Unknown]
  - Injection site swelling [Unknown]
  - Drug hypersensitivity [Unknown]
  - Injection site swelling [Unknown]
  - Injection site erythema [Unknown]
  - Injection site erythema [Unknown]
  - Drug hypersensitivity [Unknown]
  - Injection site abscess sterile [Unknown]
  - Abscess [Unknown]
  - Injection site abscess sterile [Unknown]
  - Injection site abscess sterile [Unknown]
  - Injection site abscess sterile [Unknown]
  - Drug hypersensitivity [Unknown]
  - Injection site abscess sterile [Unknown]
  - Injection site mass [Unknown]
  - Drug hypersensitivity [Unknown]
  - Injection site mass [Unknown]
  - Drug hypersensitivity [Unknown]
  - Injection site swelling [Unknown]
  - Injection site mass [Unknown]
  - Injection site mass [Unknown]

NARRATIVE: CASE EVENT DATE: 201501
